FAERS Safety Report 21295131 (Version 4)
Quarter: 2022Q4

REPORT INFORMATION
  Report Type: Report from Study
  Country: US (occurrence: US)
  Receive Date: 20220905
  Receipt Date: 20221226
  Transmission Date: 20230112
  Serious: No
  Sender: FDA-Public Use
  Company Number: US-NOVARTISTESTPH-NVSC2022US199272

PATIENT
  Sex: Female
  Weight: 92.063 kg

DRUGS (2)
  1. TREPROSTINIL [Suspect]
     Active Substance: TREPROSTINIL
     Indication: Pulmonary arterial hypertension
     Dosage: 92 NANOGRAM PER KILOGRAM / MIN, CONT
     Route: 058
     Dates: start: 20210809
  2. ADEMPAS [Concomitant]
     Active Substance: RIOCIGUAT
     Indication: Product used for unknown indication
     Dosage: UNK
     Route: 065

REACTIONS (4)
  - Aphonia [Unknown]
  - Seasonal allergy [Unknown]
  - Cough [Unknown]
  - Sneezing [Unknown]
